FAERS Safety Report 8596763 (Version 2)
Quarter: 2012Q4

REPORT INFORMATION
  Report Type: 
  Country: JP (occurrence: JP)
  Receive Date: 20120605
  Receipt Date: 20121102
  Transmission Date: 20130627
  Serious: Yes (Other)
  Sender: FDA-Public Use
  Company Number: JP-ELI_LILLY_AND_COMPANY-JP201205010420

PATIENT
  Age: 74 Year
  Sex: Male

DRUGS (8)
  1. FORTEO [Suspect]
     Indication: OSTEOPOROSIS
     Dosage: 20 ug, qd
     Route: 058
     Dates: start: 20120509, end: 20120525
  2. EPINAZION [Concomitant]
     Indication: HYPERSENSITIVITY
     Dosage: 20 mg, qd
     Route: 048
     Dates: start: 20120323, end: 20120525
  3. SENNOSIDE [Concomitant]
     Indication: CONSTIPATION
     Dosage: 24 mg, qd
     Route: 048
     Dates: start: 20120323, end: 20120509
  4. SENNOSIDE [Concomitant]
     Dosage: 36 mg, qd
     Route: 048
     Dates: start: 20120510
  5. DEPAS [Concomitant]
     Indication: NEUROSIS
     Dosage: 1 mg, qd
     Route: 048
     Dates: start: 20120323
  6. MAGLAX [Concomitant]
     Indication: CONSTIPATION
     Dosage: 250 mg, tid
     Route: 048
     Dates: start: 20120501, end: 20120520
  7. MAGLAX [Concomitant]
     Dosage: 1250 mg, unknown
     Route: 048
     Dates: start: 20120521, end: 20120527
  8. MAGLAX [Concomitant]
     Dosage: 500 mg, bid
     Route: 048
     Dates: start: 20120528

REACTIONS (1)
  - Agranulocytosis [Unknown]
